FAERS Safety Report 5806786-3 (Version None)
Quarter: 2008Q3

REPORT INFORMATION
  Report Type: 
  Country: None (occurrence: None)
  Receive Date: 20080711
  Receipt Date: 20080703
  Transmission Date: 20090109
  Serious: Yes (Other)
  Sender: FDA-Public Use
  Company Number: FR-JNJFOC-20080505906

PATIENT
  Sex: Male
  Weight: 30 kg

DRUGS (3)
  1. RISPERDAL [Suspect]
     Indication: AGGRESSION
     Route: 048
  2. RISPERDAL [Suspect]
     Indication: SCHOOL REFUSAL
     Route: 048
  3. RISPERDAL [Suspect]
     Indication: ABNORMAL BEHAVIOUR
     Route: 048

REACTIONS (2)
  - POLYDIPSIA [None]
  - POLYURIA [None]
